FAERS Safety Report 21054877 (Version 2)
Quarter: 2022Q3

REPORT INFORMATION
  Report Type: Spontaneous
  Country: US (occurrence: US)
  Receive Date: 20220707
  Receipt Date: 20220729
  Transmission Date: 20221026
  Serious: Yes (Hospitalization, Other)
  Sender: FDA-Public Use
  Company Number: US-TEVA-2022-US-2052272

PATIENT
  Age: 2 Year
  Sex: Female

DRUGS (5)
  1. DAUNORUBICIN [Suspect]
     Active Substance: DAUNORUBICIN
     Indication: Acute myeloid leukaemia refractory
     Dosage: INDUCTION I; FURTHER RECEIVED THREE SUBSEQUENT CYCLES OF CHEMOTHERAPY
     Route: 065
  2. ETOPOSIDE [Suspect]
     Active Substance: ETOPOSIDE
     Indication: Acute myeloid leukaemia refractory
     Dosage: INDUCTION I; FURTHER RECEIVED THREE SUBSEQUENT CYCLES OF CHEMOTHERAPY
     Route: 065
  3. CYTARABINE [Suspect]
     Active Substance: CYTARABINE
     Indication: Acute myeloid leukaemia refractory
     Dosage: INDUCTION I; FURTHER RECEIVED THREE SUBSEQUENT CYCLES OF CHEMOTHERAPY
     Route: 065
  4. DECITABINE [Suspect]
     Active Substance: DECITABINE
     Indication: Acute myeloid leukaemia refractory
     Route: 065
  5. VORINOSTAT [Suspect]
     Active Substance: VORINOSTAT
     Indication: Acute myeloid leukaemia refractory
     Route: 065

REACTIONS (2)
  - Vascular device infection [Unknown]
  - Drug ineffective [Unknown]
